FAERS Safety Report 16733553 (Version 2)
Quarter: 2019Q3

REPORT INFORMATION
  Report Type: Spontaneous
  Country: DE (occurrence: DE)
  Receive Date: 20190823
  Receipt Date: 20190902
  Transmission Date: 20191005
  Serious: Yes (Life-Threatening, Hospitalization, Other)
  Sender: FDA-Public Use
  Company Number: DE-ALEMBIC PHARMACUETICALS LIMITED-2019SCAL000557

PATIENT

DRUGS (3)
  1. MODAFINIL. [Suspect]
     Active Substance: MODAFINIL
     Indication: PRODUCT USED FOR UNKNOWN INDICATION
     Dosage: 200 MG
  2. MODAFINIL. [Suspect]
     Active Substance: MODAFINIL
     Dosage: 200 MILLIGRAM
  3. MODAFINIL. [Suspect]
     Active Substance: MODAFINIL
     Dosage: 200 MILLIGRAM

REACTIONS (13)
  - Ventricular hypokinesia [Recovered/Resolved]
  - Pyrexia [Recovered/Resolved]
  - Ejection fraction decreased [Recovered/Resolved]
  - Influenza like illness [Recovered/Resolved]
  - Dyspnoea [Recovered/Resolved]
  - Respiratory failure [Recovered/Resolved]
  - Angina pectoris [Recovered/Resolved]
  - Eosinophilic pleural effusion [Recovered/Resolved]
  - General physical health deterioration [Unknown]
  - Cardiogenic shock [Recovered/Resolved]
  - Drug hypersensitivity [Unknown]
  - Pneumonia [Unknown]
  - Eosinophilic myocarditis [Recovered/Resolved]
